FAERS Safety Report 11762057 (Version 1)
Quarter: 2015Q4

REPORT INFORMATION
  Report Type: Spontaneous
  Country: US (occurrence: US)
  Receive Date: 20151120
  Receipt Date: 20151120
  Transmission Date: 20160304
  Serious: No
  Sender: FDA-Public Use
  Company Number: US-AMNEAL PHARMACEUTICALS-2015AMN00137

PATIENT
  Age: 66 Year
  Sex: Female
  Weight: 77.98 kg

DRUGS (2)
  1. RANITIDINE [Suspect]
     Active Substance: RANITIDINE\RANITIDINE HYDROCHLORIDE
     Indication: GASTROOESOPHAGEAL REFLUX DISEASE
     Dosage: 1 TABLETS, 2X/DAY
     Route: 048
     Dates: start: 20141215, end: 20150225
  2. PSYLLIUM FIBER [Concomitant]
     Indication: CONSTIPATION
     Dosage: 1 TSP, 1X/DAY
     Dates: start: 2014

REACTIONS (3)
  - Myalgia [Recovered/Resolved]
  - Insomnia [Recovered/Resolved]
  - Arthralgia [Recovered/Resolved]

NARRATIVE: CASE EVENT DATE: 20141222
